FAERS Safety Report 8151549 (Version 5)
Quarter: 2013Q4

REPORT INFORMATION
  Report Type: Spontaneous
  Country: US (occurrence: US)
  Receive Date: 20110922
  Receipt Date: 20131018
  Transmission Date: 20140711
  Serious: Yes (Other)
  Sender: FDA-Public Use
  Company Number: US-ASTRAZENECA-2011SE12702

PATIENT
  Age: 48 Year
  Sex: Female
  Weight: 74.8 kg

DRUGS (19)
  1. SEROQUEL [Suspect]
     Indication: ANXIETY
     Route: 048
     Dates: start: 2004
  2. SEROQUEL [Suspect]
     Indication: DEPRESSION
     Route: 048
     Dates: start: 2004
  3. SEROQUEL [Suspect]
     Indication: ANXIETY
     Dosage: 50- 125 MG AT BEDTIME
     Route: 048
     Dates: start: 20060703
  4. SEROQUEL [Suspect]
     Indication: DEPRESSION
     Dosage: 50- 125 MG AT BEDTIME
     Route: 048
     Dates: start: 20060703
  5. ZOLOFT [Concomitant]
     Dates: start: 20040529
  6. PREVACID [Concomitant]
     Dates: start: 20040529
  7. EFFEXOR XR [Concomitant]
     Dosage: 75-225 MG DAILY
     Route: 048
     Dates: start: 20060703
  8. TRAZODONE [Concomitant]
     Dosage: 50 MG 1/2-2 AT BED TIME,PRN
  9. LISINOPRIL HCTZ [Concomitant]
     Dosage: 10 TO 12.5 MG TAKE 1 RABLET DAILY
  10. IBUPROFEN [Concomitant]
  11. NEXIUM [Concomitant]
     Dates: start: 20091117
  12. ZANTAC [Concomitant]
  13. PEPCID [Concomitant]
  14. PRISTIQ [Concomitant]
     Dates: start: 20120926
  15. NEURONTIN [Concomitant]
     Dates: start: 20120926
  16. LUNESTA [Concomitant]
     Dates: start: 20130613
  17. ABILIFY [Concomitant]
     Dates: start: 20120926
  18. AMBIEN [Concomitant]
     Dates: start: 20120926
  19. MULTIVITAMIN [Concomitant]
     Dates: start: 20120926

REACTIONS (3)
  - Diabetic coma [Unknown]
  - Pancreatitis [Unknown]
  - Type 2 diabetes mellitus [Unknown]
